FAERS Safety Report 18253832 (Version 1)
Quarter: 2020Q3

REPORT INFORMATION
  Report Type: Spontaneous
  Country: BG (occurrence: BG)
  Receive Date: 20200910
  Receipt Date: 20200910
  Transmission Date: 20201103
  Serious: Yes (Death, Hospitalization, Other)
  Sender: FDA-Public Use
  Company Number: GXKR2010BG08849

PATIENT
  Age: 56 Year
  Sex: Female

DRUGS (5)
  1. EPIRUBICIN [Suspect]
     Active Substance: EPIRUBICIN
     Indication: BREAST CANCER
  2. EPIRUBICIN [Suspect]
     Active Substance: EPIRUBICIN
     Indication: CHEMOTHERAPY
     Dosage: 80 MG/M2
     Route: 065
  3. DOCETAXEL. [Suspect]
     Active Substance: DOCETAXEL
     Indication: CHEMOTHERAPY
     Dosage: 80 MILLIGRAM/SQ. METER
     Route: 065
  4. FILGRASTIM [Suspect]
     Active Substance: FILGRASTIM
     Indication: PROPHYLAXIS
     Dosage: UNK
     Route: 065
  5. DOCETAXEL. [Suspect]
     Active Substance: DOCETAXEL
     Indication: BREAST CANCER

REACTIONS (18)
  - Bacteraemia [Fatal]
  - Dysuria [Fatal]
  - Neutropenia [Fatal]
  - Cellulitis [Fatal]
  - Renal impairment [Fatal]
  - Death [Fatal]
  - Coagulopathy [Fatal]
  - Skin lesion [Fatal]
  - Back pain [Fatal]
  - Pruritus [Fatal]
  - Urinary tract pain [Fatal]
  - Pain in extremity [Fatal]
  - Osteochondrosis [Fatal]
  - Hepatic failure [Fatal]
  - Anaemia [Fatal]
  - Dyspnoea [Fatal]
  - Thrombocytopenia [Fatal]
  - Hepatic function abnormal [Fatal]

NARRATIVE: CASE EVENT DATE: 2009
